FAERS Safety Report 5746877-9 (Version None)
Quarter: 2008Q2

REPORT INFORMATION
  Report Type: 
  Country: None (occurrence: None)
  Receive Date: 20080522
  Receipt Date: 20080511
  Transmission Date: 20081010
  Serious: Yes (Hospitalization, Other)
  Sender: FDA-Public Use
  Company Number: US-PFIZER INC-2007105901

PATIENT
  Sex: Male

DRUGS (1)
  1. CHANTIX [Suspect]

REACTIONS (4)
  - ATRIAL FIBRILLATION [None]
  - CARDIAC FAILURE CONGESTIVE [None]
  - DYSGEUSIA [None]
  - STRESS [None]
